FAERS Safety Report 4437279-6 (Version None)
Quarter: 2004Q3

REPORT INFORMATION
  Report Type: 
  Country: None (occurrence: None)
  Receive Date: 20040726
  Receipt Date: 20040503
  Transmission Date: 20050211
  Serious: Yes (Other)
  Sender: FDA-Public Use
  Company Number: USA040363366

PATIENT
  Age: 77 Year
  Sex: Female

DRUGS (7)
  1. FORTEO [Suspect]
     Indication: OSTEOPOROSIS
     Dates: start: 20030601
  2. SALINE  (SODIUM CHLORIDE) [Concomitant]
  3. NIACIN [Concomitant]
  4. PREVACID [Concomitant]
  5. GLUCOSAMINE CHONDROITIN [Concomitant]
  6. MOBIDIN (MAGNESIUM SALICYLATE) [Concomitant]
  7. NITROGLYCERIN [Concomitant]

REACTIONS (10)
  - ANGINA PECTORIS [None]
  - ANXIETY [None]
  - DIZZINESS [None]
  - ESSENTIAL TREMOR [None]
  - HYPERTENSION [None]
  - INSOMNIA [None]
  - MUSCLE CRAMP [None]
  - PAIN IN EXTREMITY [None]
  - PALPITATIONS [None]
  - SOMNOLENCE [None]
